FAERS Safety Report 16217205 (Version 1)
Quarter: 2019Q2

REPORT INFORMATION
  Report Type: Spontaneous
  Country: CN (occurrence: CN)
  Receive Date: 20190419
  Receipt Date: 20190419
  Transmission Date: 20190711
  Serious: Yes (Other)
  Sender: FDA-Public Use
  Company Number: CN-ASTRAZENECA-2019SE59630

PATIENT
  Age: 28544 Day
  Sex: Male
  Weight: 69 kg

DRUGS (17)
  1. INSULIN GLARGINE [Concomitant]
     Active Substance: INSULIN GLARGINE
     Indication: DIABETES MELLITUS
     Dosage: 12 UNITS, DAILY
     Route: 058
     Dates: start: 20190325, end: 20190326
  2. INSULIN GLARGINE [Concomitant]
     Active Substance: INSULIN GLARGINE
     Indication: DIABETES MELLITUS
     Dosage: 24 UNITS, DAILY
     Route: 058
     Dates: start: 20190330, end: 20190402
  3. ESOMEPRAZOLE SODIUM. [Suspect]
     Active Substance: ESOMEPRAZOLE SODIUM
     Indication: MUSCLE SPASMS
     Route: 042
     Dates: start: 20190401, end: 20190401
  4. LEVODOPA AND BENSERAZIDE HYDROCHLORIDE TABLETS [Concomitant]
     Indication: PARKINSON^S DISEASE
     Route: 048
     Dates: start: 20190326, end: 20190329
  5. SODIUM CHLORIDE INJECTION [Concomitant]
     Active Substance: SODIUM CHLORIDE
     Indication: PRODUCT PREPARATION ISSUE
     Route: 042
     Dates: start: 20190330, end: 20190405
  6. CEFMINOX SODIUM [Concomitant]
     Active Substance: CEFMINOX SODIUM
     Indication: ANTI-INFECTIVE THERAPY
     Route: 042
     Dates: start: 20190326, end: 20190405
  7. AMLODIPINE BESYLATE. [Concomitant]
     Active Substance: AMLODIPINE BESYLATE
     Indication: HYPERTENSION
     Route: 048
     Dates: start: 20190325, end: 20190405
  8. SODIUM CHLORIDE INJECTION [Concomitant]
     Active Substance: SODIUM CHLORIDE
     Indication: PRODUCT PREPARATION ISSUE
     Route: 042
     Dates: start: 20190324, end: 20190330
  9. SODIUM CHLORIDE INJECTION [Concomitant]
     Active Substance: SODIUM CHLORIDE
     Indication: PRODUCT PREPARATION ISSUE
     Route: 042
     Dates: start: 20190401, end: 20190405
  10. REPAGLINIDE. [Concomitant]
     Active Substance: REPAGLINIDE
     Indication: DIABETES MELLITUS
     Route: 048
     Dates: start: 20190401, end: 20190403
  11. INSULIN GLARGINE [Concomitant]
     Active Substance: INSULIN GLARGINE
     Indication: DIABETES MELLITUS
     Dosage: 14 UNITS, DAILY
     Route: 058
     Dates: start: 20190327, end: 20190329
  12. PRAMIPEXOLE. [Concomitant]
     Active Substance: PRAMIPEXOLE
     Indication: PARKINSON^S DISEASE
     Route: 048
     Dates: start: 20190326, end: 20190403
  13. LANSOPRAZOLE. [Suspect]
     Active Substance: LANSOPRAZOLE
     Indication: GASTROOESOPHAGEAL REFLUX DISEASE
     Route: 042
     Dates: start: 20190324, end: 20190330
  14. LANSOPRAZOLE. [Suspect]
     Active Substance: LANSOPRAZOLE
     Indication: MUSCLE SPASMS
     Route: 042
     Dates: start: 20190324, end: 20190330
  15. ESOMEPRAZOLE SODIUM. [Suspect]
     Active Substance: ESOMEPRAZOLE SODIUM
     Indication: GASTROOESOPHAGEAL REFLUX DISEASE
     Route: 042
     Dates: start: 20190401, end: 20190401
  16. OFLOXACIN. [Suspect]
     Active Substance: OFLOXACIN
     Indication: ANTI-INFECTIVE THERAPY
     Route: 042
     Dates: start: 20190328, end: 20190405
  17. DIGESTIVE ENZYMES [Concomitant]
     Active Substance: UNSPECIFIED INGREDIENT
     Indication: DYSPEPSIA
     Route: 048
     Dates: start: 20190325, end: 20190403

REACTIONS (1)
  - Renal failure [Not Recovered/Not Resolved]

NARRATIVE: CASE EVENT DATE: 20190402
